FAERS Safety Report 4601589-X (Version None)
Quarter: 2005Q1

REPORT INFORMATION
  Report Type: 
  Country: None (occurrence: None)
  Receive Date: 20050131
  Receipt Date: 20041029
  Transmission Date: 20050727
  Serious: No
  Sender: FDA-Public Use
  Company Number: 200418425US

PATIENT
  Sex: Female

DRUGS (2)
  1. KETEK [Suspect]
  2. DESOGESTREL W/ETHINYLESTRADIOL [Concomitant]

REACTIONS (1)
  - METRORRHAGIA [None]
